FAERS Safety Report 8009513-7 (Version None)
Quarter: 2011Q4

REPORT INFORMATION
  Report Type: 
  Country: None (occurrence: None)
  Receive Date: 20111227
  Receipt Date: 20111222
  Transmission Date: 20120403
  Serious: Yes (Other)
  Sender: FDA-Public Use
  Company Number: GB-MERCK-1112GBR00080

PATIENT
  Age: 77 Year
  Sex: Male

DRUGS (9)
  1. INSULIN [Concomitant]
     Route: 065
  2. METFORMIN [Concomitant]
     Route: 065
  3. PERINDOPRIL [Concomitant]
     Route: 065
  4. CITALOPRAM [Concomitant]
     Route: 065
  5. AMLODIPINE [Concomitant]
     Route: 065
  6. FUROSEMIDE [Concomitant]
     Route: 065
  7. TAMSULOSIN HYDROCHLORIDE [Concomitant]
     Route: 065
  8. SINEMET [Suspect]
     Indication: PARKINSON'S DISEASE
     Route: 048
     Dates: start: 20110606
  9. TEMAZEPAM [Concomitant]
     Route: 065

REACTIONS (2)
  - IMPULSE-CONTROL DISORDER [None]
  - COMPULSIVE SEXUAL BEHAVIOUR [None]
